FAERS Safety Report 8830656 (Version 1)
Quarter: 2012Q4

REPORT INFORMATION
  Report Type: 
  Country: US (occurrence: US)
  Receive Date: 20121009
  Receipt Date: 20121009
  Transmission Date: 20130627
  Serious: Yes (Life-Threatening, Hospitalization)
  Sender: FDA-Public Use
  Company Number: US-BAYER-2012-104051

PATIENT
  Age: 85 Year
  Sex: Male

DRUGS (2)
  1. ACETYLSALICYLIC ACID({=100 MG) [Suspect]
  2. COUMADIN [Suspect]

REACTIONS (3)
  - Gastrointestinal haemorrhage [None]
  - Hypovolaemic shock [None]
  - Haemorrhagic anaemia [None]
